FAERS Safety Report 20266887 (Version 1)
Quarter: 2021Q4

REPORT INFORMATION
  Report Type: Spontaneous
  Country: US (occurrence: US)
  Receive Date: 20211231
  Receipt Date: 20211231
  Transmission Date: 20220303
  Serious: Yes (Other)
  Sender: FDA-Public Use
  Company Number: US-AVENTIS-200611116US

PATIENT
  Age: 64 Year
  Sex: Female
  Weight: 95.45 kg

DRUGS (27)
  1. PENLAC [Suspect]
     Active Substance: CICLOPIROX
     Indication: Onychomycosis
     Dosage: DOSE AS USED: UNK
     Route: 061
     Dates: start: 20050821, end: 200602
  2. HYDROXYCHLOROQUINE SULFATE [Suspect]
     Active Substance: HYDROXYCHLOROQUINE SULFATE
     Dosage: UNK
     Dates: start: 200603, end: 20061207
  3. LIPITOR [Suspect]
     Active Substance: ATORVASTATIN CALCIUM
     Indication: Hyperlipidaemia
     Dosage: DOSE AS USED: UNK
     Dates: start: 2004, end: 200601
  4. LIPITOR [Suspect]
     Active Substance: ATORVASTATIN CALCIUM
     Dosage: DOSE AS USED: UNK
     Route: 065
     Dates: start: 1994, end: 2004
  5. PREVACID [Concomitant]
     Active Substance: LANSOPRAZOLE
     Dosage: DOSE AS USED: UNK
     Route: 065
  6. HYDROCODONE BITARTRATE [Concomitant]
     Active Substance: HYDROCODONE BITARTRATE
     Dosage: UNK UNK,PRN
  7. AMBIEN [Concomitant]
     Active Substance: ZOLPIDEM TARTRATE
     Dosage: UNK UNK,PRN
  8. VITAMINS NOS [Concomitant]
     Active Substance: VITAMINS
     Dosage: DOSE AS USED: UNK
  9. METAXALONE [Concomitant]
     Active Substance: METAXALONE
     Dosage: DOSE AS USED: UNKNOWN
  10. ESTRADIOL [Concomitant]
     Active Substance: ESTRADIOL
     Dosage: DOSE AS USED: 0.0375 MG/24
     Route: 065
  11. BIAXIN [Concomitant]
     Active Substance: CLARITHROMYCIN
     Dosage: 500 MG,UNK
     Dates: start: 20050726, end: 200508
  12. BIAXIN [Concomitant]
     Active Substance: CLARITHROMYCIN
     Dosage: 500 MG,UNK
     Dates: start: 20050920, end: 200509
  13. AMI-TEX LA [Concomitant]
     Dosage: DOSE AS USED: 600-30 MG
     Dates: start: 20051109
  14. AZMACORT [Concomitant]
     Active Substance: TRIAMCINOLONE ACETONIDE
     Dosage: 100 UG,UNK
     Dates: start: 20051202
  15. ZYRTEC [Concomitant]
     Active Substance: CETIRIZINE HYDROCHLORIDE
     Dosage: 10 MG,UNK
     Dates: start: 20051207
  16. OSELTAMIVIR [Concomitant]
     Active Substance: OSELTAMIVIR
     Dosage: DOSE AS USED: UNK
     Dates: start: 20051222
  17. RANITIDINE [Concomitant]
     Active Substance: RANITIDINE
     Dosage: 300 MG,UNK
     Dates: start: 20051228
  18. FEXOFENADINE [Concomitant]
     Active Substance: FEXOFENADINE HYDROCHLORIDE
     Dosage: DOSE AS USED: 120-60 MG
     Dates: start: 20051228
  19. ERGOCALCIFEROL [Concomitant]
     Active Substance: ERGOCALCIFEROL
     Dosage: UNK
  20. ASCORBIC ACID [Concomitant]
     Active Substance: ASCORBIC ACID
     Dosage: UNK
  21. FOLIC ACID [Concomitant]
     Active Substance: FOLIC ACID
     Dosage: UNK
  22. THIAMINE HYDROCHLORIDE [Concomitant]
     Active Substance: THIAMINE HYDROCHLORIDE
     Dosage: UNK
  23. RETINOL [Concomitant]
     Active Substance: RETINOL
     Dosage: UNK
  24. RIBOFLAVIN [Concomitant]
     Active Substance: RIBOFLAVIN
     Dosage: UNK
  25. NICOTINAMIDE [Concomitant]
     Active Substance: NIACINAMIDE
     Dosage: UNK
  26. PANTHENOL [Concomitant]
     Active Substance: PANTHENOL
     Dosage: UNK
  27. ACETAMINOPHEN\CHLORZOXAZONE [Concomitant]
     Active Substance: ACETAMINOPHEN\CHLORZOXAZONE
     Dosage: UNK

REACTIONS (50)
  - Dermatomyositis [Recovered/Resolved]
  - Drug interaction [Unknown]
  - Rash [Unknown]
  - Blood creatine phosphokinase increased [Unknown]
  - Asthenia [Unknown]
  - Antinuclear antibody increased [Unknown]
  - Fibromyalgia [Unknown]
  - Condition aggravated [Unknown]
  - Carpal tunnel syndrome [Recovered/Resolved with Sequelae]
  - Tendonitis [Unknown]
  - Hypoaesthesia [Unknown]
  - Nodule [Unknown]
  - Lymphadenopathy mediastinal [Unknown]
  - Lupus-like syndrome [Unknown]
  - Lung disorder [Unknown]
  - Nerve injury [Unknown]
  - Hepatic steatosis [Unknown]
  - Polyp [Recovered/Resolved]
  - Rectal polyp [Unknown]
  - Barrett^s oesophagus [Unknown]
  - Irritable bowel syndrome [Unknown]
  - Asthenia [Recovered/Resolved]
  - Antinuclear antibody increased [Unknown]
  - Cardiolipin antibody [Unknown]
  - Aspergillus infection [Unknown]
  - Atypical pneumonia [Unknown]
  - Bronchitis chronic [Unknown]
  - Aphonia [Recovered/Resolved]
  - Weight decreased [Recovering/Resolving]
  - Infection [Unknown]
  - Gastrointestinal disorder [Unknown]
  - Musculoskeletal disorder [Unknown]
  - Synovitis [Unknown]
  - Trigger finger [Unknown]
  - Hiatus hernia [Unknown]
  - Weight increased [Unknown]
  - Haemorrhoids [Unknown]
  - Diverticulum intestinal [Unknown]
  - Spinal osteoarthritis [Unknown]
  - Spinal stenosis [Unknown]
  - Fall [Unknown]
  - Vocal cord polyp [Unknown]
  - Laryngitis [Recovered/Resolved]
  - Drug interaction [Unknown]
  - Weight decreased [Recovered/Resolved with Sequelae]
  - Drug interaction [Unknown]
  - Decreased appetite [Recovered/Resolved]
  - Drug interaction [Unknown]
  - Liver function test abnormal [Recovered/Resolved]
  - Drug interaction [Unknown]

NARRATIVE: CASE EVENT DATE: 20040101
